FAERS Safety Report 22863611 (Version 4)
Quarter: 2023Q4

REPORT INFORMATION
  Report Type: Spontaneous
  Country: US (occurrence: US)
  Receive Date: 20230825
  Receipt Date: 20231018
  Transmission Date: 20240109
  Serious: Yes (Hospitalization)
  Sender: FDA-Public Use
  Company Number: US-APOTEX-2023AP012401

PATIENT
  Sex: Female

DRUGS (3)
  1. DESMOPRESSIN ACETATE [Suspect]
     Active Substance: DESMOPRESSIN ACETATE
     Indication: Product used for unknown indication
     Dosage: 2 DOSAGE FORM (1 SPRAY IN EACH NOSTRIL), QD
     Route: 045
  2. DESMOPRESSIN ACETATE [Suspect]
     Active Substance: DESMOPRESSIN ACETATE
     Dosage: 4 DOSAGE FORM (2 SPRAYS IN EACH NOSTRIL), QD
     Route: 045
  3. DESMOPRESSIN ACETATE [Suspect]
     Active Substance: DESMOPRESSIN ACETATE
     Dosage: 4 DOSAGE FORM (2 SPRAYS IN EACH NOSTRIL), QD
     Route: 045

REACTIONS (3)
  - Blood sodium decreased [Unknown]
  - Drug ineffective [Unknown]
  - Therapeutic response shortened [Unknown]

NARRATIVE: CASE EVENT DATE: 20230101
